FAERS Safety Report 11078437 (Version 1)
Quarter: 2015Q2

REPORT INFORMATION
  Report Type: Spontaneous
  Country: US (occurrence: None)
  Receive Date: 20150429
  Receipt Date: 20150429
  Transmission Date: 20150821
  Serious: No
  Sender: FDA-Public Use
  Company Number: None

PATIENT
  Age: 65 Year
  Sex: Male
  Weight: 76.1 kg

DRUGS (1)
  1. INFLIXIMAB [Suspect]
     Active Substance: INFLIXIMAB
     Dosage: 300 MG  UNKNOWN  IV
     Route: 042
     Dates: start: 20140101, end: 20140717

REACTIONS (2)
  - Cardiac failure congestive [None]
  - Drug hypersensitivity [None]

NARRATIVE: CASE EVENT DATE: 20140717
